FAERS Safety Report 19803694 (Version 2)
Quarter: 2022Q3

REPORT INFORMATION
  Report Type: Spontaneous
  Country: PT (occurrence: PT)
  Receive Date: 20210908
  Receipt Date: 20220928
  Transmission Date: 20221027
  Serious: Yes (Congenital Anomaly, Other)
  Sender: FDA-Public Use
  Company Number: PT-SUN PHARMACEUTICAL INDUSTRIES LTD-2021R1-310494

PATIENT
  Sex: Female
  Weight: 1.815 kg

DRUGS (1)
  1. VALACYCLOVIR [Suspect]
     Active Substance: VALACYCLOVIR HYDROCHLORIDE
     Indication: Congenital cytomegalovirus infection
     Dosage: 8 GRAM, DAILY
     Route: 064

REACTIONS (11)
  - Foetal exposure during pregnancy [Unknown]
  - Congenital cytomegalovirus infection [Unknown]
  - Foetal distress syndrome [Unknown]
  - Ultrasound uterus abnormal [Unknown]
  - Premature baby [Unknown]
  - Low birth weight baby [Unknown]
  - Leukopenia [Recovered/Resolved]
  - Neutropenia [Recovered/Resolved]
  - Thrombocytopenia [Unknown]
  - Hyperbilirubinaemia neonatal [Unknown]
  - Gamma-glutamyltransferase increased [Unknown]
